FAERS Safety Report 6640152-6 (Version None)
Quarter: 2010Q1

REPORT INFORMATION
  Report Type: 
  Country: None (occurrence: None)
  Receive Date: 20100318
  Receipt Date: 20100308
  Transmission Date: 20100710
  Serious: Yes (Hospitalization, Other)
  Sender: FDA-Public Use
  Company Number: US-AMGEN-QUU398343

PATIENT
  Sex: Female

DRUGS (1)
  1. ENBREL [Suspect]
     Indication: RHEUMATOID ARTHRITIS
     Route: 058
     Dates: start: 20070101

REACTIONS (10)
  - ABASIA [None]
  - BRONCHITIS [None]
  - DEPRESSION [None]
  - INTERSTITIAL LUNG DISEASE [None]
  - MENOPAUSAL SYMPTOMS [None]
  - PNEUMONIA [None]
  - PULMONARY MASS [None]
  - SINUSITIS [None]
  - WEIGHT INCREASED [None]
  - WHITE BLOOD CELL COUNT ABNORMAL [None]
